FAERS Safety Report 6932928-2 (Version None)
Quarter: 2010Q3

REPORT INFORMATION
  Report Type: 
  Country: None (occurrence: None)
  Receive Date: 20100819
  Receipt Date: 20100517
  Transmission Date: 20110219
  Serious: No
  Sender: FDA-Public Use
  Company Number: US-TYCO HEALTHCARE/MALLINCKRODT-T201001253

PATIENT

DRUGS (2)
  1. CYSTO-CONRAY II [Suspect]
     Dosage: 2 ML, SINGLE
     Route: 042
     Dates: start: 20100517, end: 20100517
  2. CONRAY [Suspect]

REACTIONS (2)
  - INCORRECT ROUTE OF DRUG ADMINISTRATION [None]
  - WRONG DRUG ADMINISTERED [None]
